FAERS Safety Report 4802866-X (Version None)
Quarter: 2005Q4

REPORT INFORMATION
  Report Type: 
  Country: None (occurrence: None)
  Receive Date: 20051017
  Receipt Date: 20051017
  Transmission Date: 20060501
  Serious: Yes (Life-Threatening)
  Sender: FDA-Public Use
  Company Number: None

PATIENT
  Age: 64 Year
  Sex: Female
  Weight: 63.05 kg

DRUGS (4)
  1. FLOVENT HFA [Suspect]
     Indication: ASTHMA
     Dosage: 2 PUFFS TWICE A DAY PO
     Route: 048
     Dates: start: 20050907, end: 20051014
  2. FLOVENT HFA [Suspect]
     Indication: CHRONIC OBSTRUCTIVE PULMONARY DISEASE
     Dosage: 2 PUFFS TWICE A DAY PO
     Route: 048
     Dates: start: 20050907, end: 20051014
  3. FLOVENT HFA [Suspect]
     Indication: SINUSITIS
     Dosage: 2 PUFFS TWICE A DAY PO
     Route: 048
     Dates: start: 20050907, end: 20051014
  4. ASTHMANEX [Concomitant]

REACTIONS (4)
  - COUGH [None]
  - DRUG HYPERSENSITIVITY [None]
  - MALAISE [None]
  - SINUSITIS [None]
